FAERS Safety Report 5536594-2 (Version None)
Quarter: 2007Q4

REPORT INFORMATION
  Report Type: 
  Country: None (occurrence: None)
  Receive Date: 20071204
  Receipt Date: 20071127
  Transmission Date: 20080405
  Serious: Yes (Life-Threatening, Hospitalization)
  Sender: FDA-Public Use
  Company Number: 028-C5013-07101196

PATIENT
  Age: 70 Year
  Sex: Female

DRUGS (5)
  1. CC-5013 (LENALIDOMIDE) (CAPSULES) [Suspect]
     Indication: MULTIPLE MYELOMA
     Dosage: 25 MG, OD; ORAL
     Route: 048
     Dates: start: 20070420, end: 20070509
  2. DEXAMETHASONE TAB [Suspect]
     Indication: MULTIPLE MYELOMA
     Dosage: 20 MG, DAILY ON DAYS 1-4, 9-12, 17-20
     Dates: start: 20070420
  3. CALCIUM CARBONATE (CALCIUM CARBONATE) [Concomitant]
  4. LOPERAMIDE [Concomitant]
  5. PANTOPRAZOLE SODIUM [Concomitant]

REACTIONS (19)
  - ABDOMINAL PAIN [None]
  - ATRIAL FIBRILLATION [None]
  - BLOOD CALCIUM DECREASED [None]
  - BLOOD MAGNESIUM DECREASED [None]
  - COAGULOPATHY [None]
  - CONVULSION [None]
  - DIARRHOEA [None]
  - FLATULENCE [None]
  - GASTROINTESTINAL ANASTOMOTIC LEAK [None]
  - GASTROINTESTINAL HAEMORRHAGE [None]
  - GASTROINTESTINAL NECROSIS [None]
  - HAEMORRHAGIC ASCITES [None]
  - HYPERKALAEMIA [None]
  - INTESTINAL ISCHAEMIA [None]
  - LARGE INTESTINAL HAEMORRHAGE [None]
  - ORAL INTAKE REDUCED [None]
  - PERITONITIS [None]
  - POST PROCEDURAL COMPLICATION [None]
  - RENAL FAILURE ACUTE [None]
